FAERS Safety Report 7411035-9 (Version None)
Quarter: 2011Q2

REPORT INFORMATION
  Report Type: 
  Country: None (occurrence: None)
  Receive Date: 20110413
  Receipt Date: 20110404
  Transmission Date: 20111010
  Serious: No
  Sender: FDA-Public Use
  Company Number: US-JNJFOC-20110402494

PATIENT
  Sex: Male

DRUGS (7)
  1. PRAVACHOL [Concomitant]
     Indication: BLOOD CHOLESTEROL INCREASED
     Route: 065
  2. PROCARDIA [Concomitant]
     Indication: BLOOD PRESSURE
     Route: 065
  3. CLONIDINE [Concomitant]
     Indication: BLOOD PRESSURE
     Route: 065
  4. HYDROCODONE [Concomitant]
     Indication: PAIN
     Route: 048
  5. LASIX [Concomitant]
     Indication: BLOOD PRESSURE
     Route: 065
  6. DURAGESIC [Suspect]
     Indication: BACK PAIN
     Route: 062
  7. FENTANYL-100 [Suspect]
     Indication: BACK PAIN
     Route: 062

REACTIONS (2)
  - THERAPEUTIC RESPONSE DECREASED [None]
  - INAPPROPRIATE SCHEDULE OF DRUG ADMINISTRATION [None]
